FAERS Safety Report 19232487 (Version 1)
Quarter: 2021Q2

REPORT INFORMATION
  Report Type: Spontaneous
  Country: GB (occurrence: GB)
  Receive Date: 20210507
  Receipt Date: 20210507
  Transmission Date: 20210717
  Serious: Yes (Life-Threatening, Other)
  Sender: FDA-Public Use
  Company Number: GB-SCIEGENPHARMA-2021SCILIT00423

PATIENT
  Age: 26 Year
  Sex: Female

DRUGS (3)
  1. PREGABALIN CAPSULES [Suspect]
     Active Substance: PREGABALIN
     Indication: PRODUCT USED FOR UNKNOWN INDICATION
     Route: 065
  2. EPINEPHRINE. [Interacting]
     Active Substance: EPINEPHRINE
     Indication: CARDIAC ARREST
     Route: 013
  3. NALOXONE [Interacting]
     Active Substance: NALOXONE
     Indication: OVERDOSE
     Route: 065

REACTIONS (4)
  - Cardiac arrest [Unknown]
  - Overdose [Unknown]
  - Snoring [Unknown]
  - Unresponsive to stimuli [Unknown]
